FAERS Safety Report 16795226 (Version 2)
Quarter: 2019Q3

REPORT INFORMATION
  Report Type: Spontaneous
  Country: BR (occurrence: BR)
  Receive Date: 20190911
  Receipt Date: 20190930
  Transmission Date: 20191005
  Serious: Yes (Other)
  Sender: FDA-Public Use
  Company Number: BR-PFIZER INC-2019388521

PATIENT
  Age: 49 Year
  Sex: Male
  Weight: 60 kg

DRUGS (3)
  1. SUTENT [Suspect]
     Active Substance: SUNITINIB MALATE
     Indication: RENAL CANCER METASTATIC
     Dosage: 50 MG, CYCLIC (ONCE A DAY, DURING 28 DAYS AND A PAUSE OF 14 DAYS)
     Dates: start: 20190724
  2. SUTENT [Suspect]
     Active Substance: SUNITINIB MALATE
     Dosage: 50 MG, CYCLIC (ONCE A DAY, DURING 28 DAYS AND A PAUSE OF 14 DAYS)
     Dates: start: 2019
  3. NALTREXONE [Concomitant]
     Active Substance: NALTREXONE
     Dosage: UNK

REACTIONS (15)
  - Skin exfoliation [Not Recovered/Not Resolved]
  - Tongue discomfort [Not Recovered/Not Resolved]
  - Weight decreased [Not Recovered/Not Resolved]
  - Penile swelling [Recovered/Resolved]
  - Wound [Not Recovered/Not Resolved]
  - Dry skin [Not Recovered/Not Resolved]
  - Oropharyngeal pain [Not Recovered/Not Resolved]
  - Skin swelling [Not Recovered/Not Resolved]
  - Decreased immune responsiveness [Not Recovered/Not Resolved]
  - Limb injury [Not Recovered/Not Resolved]
  - Tongue injury [Not Recovered/Not Resolved]
  - Ageusia [Not Recovered/Not Resolved]
  - Dry eye [Not Recovered/Not Resolved]
  - Skin atrophy [Not Recovered/Not Resolved]
  - Yellow skin [Not Recovered/Not Resolved]

NARRATIVE: CASE EVENT DATE: 201907
